FAERS Safety Report 5337869-2 (Version None)
Quarter: 2007Q2

REPORT INFORMATION
  Report Type: 
  Country: None (occurrence: None)
  Receive Date: 20070530
  Receipt Date: 20070524
  Transmission Date: 20071010
  Serious: Yes (Hospitalization)
  Sender: FDA-Public Use
  Company Number: AUWYE714724MAY07

PATIENT
  Sex: Female

DRUGS (11)
  1. EFFEXOR XR [Suspect]
     Indication: DEPRESSION
     Route: 048
     Dates: start: 20060901
  2. EFFEXOR XR [Suspect]
     Indication: ANXIETY
     Route: 048
     Dates: end: 20070301
  3. EFFEXOR XR [Suspect]
     Route: 048
     Dates: start: 20070301, end: 20070101
  4. EFFEXOR XR [Suspect]
     Route: 048
     Dates: start: 20070101
  5. SEROQUEL [Concomitant]
     Dosage: UNKNOWN
     Route: 048
  6. PRAVACHOL [Concomitant]
     Indication: HYPERCHOLESTEROLAEMIA
     Dosage: UNKNOWN
     Route: 048
  7. MOVICOL [Concomitant]
     Indication: INTESTINAL FUNCTIONAL DISORDER
     Dosage: UNKNOWN
     Route: 048
  8. PANADOL [Concomitant]
     Indication: OSTEOARTHRITIS
     Dosage: UNKNOWN
     Route: 048
  9. VALIUM [Concomitant]
     Dosage: 5 MG EVERY NIGHT
     Route: 048
  10. LANSOPRAZOLE [Concomitant]
     Indication: GASTROOESOPHAGEAL REFLUX DISEASE
     Dosage: UNKNOWN
     Route: 048
  11. FISH OIL [Concomitant]
     Dosage: UNKNOWN
     Route: 048

REACTIONS (3)
  - ANTIDEPRESSANT DRUG LEVEL ABOVE THERAPEUTIC [None]
  - DRUG EFFECT DECREASED [None]
  - EUPHORIC MOOD [None]
